FAERS Safety Report 21057880 (Version 3)
Quarter: 2022Q3

REPORT INFORMATION
  Report Type: Spontaneous
  Country: US (occurrence: US)
  Receive Date: 20220708
  Receipt Date: 20220714
  Transmission Date: 20221026
  Serious: No
  Sender: FDA-Public Use
  Company Number: US-PFIZER INC-202200935461

PATIENT
  Age: 51 Year
  Sex: Female
  Weight: 74.84 kg

DRUGS (1)
  1. XELJANZ XR [Suspect]
     Active Substance: TOFACITINIB CITRATE
     Indication: Rheumatoid arthritis
     Dosage: 11 MG, 1X/DAY
     Route: 048

REACTIONS (4)
  - Skin disorder [Not Recovered/Not Resolved]
  - Pain [Unknown]
  - Swelling [Unknown]
  - Malaise [Unknown]
